FAERS Safety Report 7682538-7 (Version None)
Quarter: 2011Q3

REPORT INFORMATION
  Report Type: 
  Country: None (occurrence: None)
  Receive Date: 20110815
  Receipt Date: 20110808
  Transmission Date: 20111222
  Serious: Yes (Death, Life-Threatening)
  Sender: FDA-Public Use
  Company Number: DE-SANOFI-AVENTIS-2011SA050470

PATIENT
  Age: 82 Year
  Sex: Male

DRUGS (12)
  1. LORAZEPAM [Suspect]
     Route: 048
     Dates: start: 20071220, end: 20071231
  2. CLOZAPINE [Suspect]
     Route: 048
     Dates: end: 20071127
  3. SAB [Concomitant]
     Route: 048
     Dates: start: 20071220, end: 20080102
  4. UBRETID [Concomitant]
     Route: 048
     Dates: start: 20071219, end: 20080102
  5. LITHIUM CARBONATE [Concomitant]
     Route: 048
     Dates: start: 20071220, end: 20080102
  6. HALDOL [Suspect]
     Route: 048
     Dates: start: 20071228, end: 20080102
  7. ZOLPIDEM [Suspect]
     Route: 048
     Dates: start: 20071130, end: 20080102
  8. MIRTAZAPINE [Suspect]
     Route: 048
     Dates: start: 20071203, end: 20080102
  9. CLOZAPINE [Suspect]
     Route: 048
     Dates: start: 20071128, end: 20080102
  10. HALDOL [Suspect]
     Route: 048
     Dates: start: 20071130, end: 20071203
  11. LITHIUM CARBONATE [Concomitant]
     Route: 048
     Dates: start: 20071212, end: 20071219
  12. HALDOL [Suspect]
     Route: 048
     Dates: start: 20071204, end: 20071227

REACTIONS (1)
  - PNEUMONIA [None]
